FAERS Safety Report 16718780 (Version 1)
Quarter: 2019Q3

REPORT INFORMATION
  Report Type: Spontaneous
  Country: US (occurrence: US)
  Receive Date: 20190820
  Receipt Date: 20190820
  Transmission Date: 20191005
  Serious: Yes (Other)
  Sender: FDA-Public Use
  Company Number: US-LUPIN PHARMACEUTICALS INC.-2019-05161

PATIENT
  Age: 53 Year
  Sex: Female
  Weight: 51.7 kg

DRUGS (1)
  1. LOSARTAN POTASSIUM TABLETS, 25 MG [Suspect]
     Active Substance: LOSARTAN POTASSIUM
     Indication: HYPERTENSION
     Dosage: 25 MILLIGRAM, BID
     Route: 048

REACTIONS (5)
  - Anxiety [Unknown]
  - Product shape issue [Unknown]
  - Blood pressure systolic increased [Not Recovered/Not Resolved]
  - Depressed mood [Unknown]
  - Eye disorder [Unknown]

NARRATIVE: CASE EVENT DATE: 20190801
